FAERS Safety Report 10213142 (Version 1)
Quarter: 2014Q2

REPORT INFORMATION
  Report Type: Spontaneous
  Country: BR (occurrence: BR)
  Receive Date: 20140603
  Receipt Date: 20140603
  Transmission Date: 20141212
  Serious: Yes (Hospitalization)
  Sender: FDA-Public Use
  Company Number: BR-ROCHE-1412174

PATIENT
  Sex: Female
  Weight: 83 kg

DRUGS (7)
  1. HERCEPTIN [Suspect]
     Indication: BREAST CANCER
     Route: 042
     Dates: start: 20140227
  2. PERJETA [Suspect]
     Indication: BREAST CANCER
     Route: 042
     Dates: start: 20140227
  3. TAXOTERE [Suspect]
     Indication: BREAST CANCER
     Route: 042
     Dates: start: 20140227
  4. TRAMAL [Concomitant]
  5. DEXAMETHASONE [Concomitant]
  6. OMEPRAZOLE [Concomitant]
  7. TEVAGRASTIM [Concomitant]
     Route: 065
     Dates: start: 20140419

REACTIONS (3)
  - Febrile neutropenia [Recovered/Resolved]
  - Pyoderma [Recovered/Resolved]
  - Dysphagia [Recovered/Resolved]
